FAERS Safety Report 14160300 (Version 2)
Quarter: 2017Q4

REPORT INFORMATION
  Report Type: Spontaneous
  Country: JP (occurrence: JP)
  Receive Date: 20171106
  Receipt Date: 20171115
  Transmission Date: 20180321
  Serious: Yes (Death, Life-Threatening, Hospitalization, Other)
  Sender: FDA-Public Use
  Company Number: JP-ASTELLAS-2013JP010336

PATIENT
  Age: 49 Year
  Sex: Female
  Weight: 47 kg

DRUGS (28)
  1. GRACEPTOR [Suspect]
     Active Substance: TACROLIMUS
     Route: 048
     Dates: start: 20161226, end: 20170111
  2. CELLCEPT [Suspect]
     Active Substance: MYCOPHENOLATE MOFETIL\MYCOPHENOLATE MOFETIL HYDROCHLORIDE
     Indication: RENAL TRANSPLANT
     Route: 048
     Dates: start: 20040411, end: 20161220
  3. SOLU-MEDROL [Suspect]
     Active Substance: METHYLPREDNISOLONE SODIUM SUCCINATE
     Indication: RENAL TRANSPLANT
     Route: 041
     Dates: start: 20040114, end: 20040114
  4. PENMALIN [Concomitant]
     Active Substance: PIPERACILLIN SODIUM
     Indication: RENAL TRANSPLANT
     Route: 041
     Dates: start: 20040114, end: 20040114
  5. TS-1 [Concomitant]
     Active Substance: GIMERACIL\OTERACIL\TEGAFUR
     Indication: BREAST CANCER
     Route: 048
     Dates: start: 20140908, end: 20140922
  6. ACETAMINOPHEN. [Concomitant]
     Active Substance: ACETAMINOPHEN
     Indication: BREAST CANCER
     Dosage: 400 MG, WHEN HAVING PAIN
     Route: 048
     Dates: start: 20160419, end: 20160428
  7. SIMULECT [Suspect]
     Active Substance: BASILIXIMAB
     Indication: RENAL TRANSPLANT
     Route: 042
     Dates: start: 20040114, end: 20040114
  8. CERTICAN [Suspect]
     Active Substance: EVEROLIMUS
     Indication: RENAL TRANSPLANT
     Route: 048
     Dates: start: 20130130, end: 20130212
  9. CERTICAN [Suspect]
     Active Substance: EVEROLIMUS
     Route: 048
     Dates: start: 20130213, end: 20161220
  10. MEDROL [Suspect]
     Active Substance: METHYLPREDNISOLONE
     Route: 048
     Dates: end: 20170111
  11. SOLDEM 1 [Concomitant]
     Active Substance: DEXTROSE\SODIUM CHLORIDE\SODIUM LACTATE
     Indication: RENAL TRANSPLANT
     Route: 041
     Dates: start: 20040114, end: 20040114
  12. PROGRAF [Suspect]
     Active Substance: TACROLIMUS\TACROLIMUS ANHYDROUS
     Indication: RENAL TRANSPLANT
     Route: 048
     Dates: start: 20040111, end: 20040111
  13. PROGRAF [Suspect]
     Active Substance: TACROLIMUS\TACROLIMUS ANHYDROUS
     Dosage: 0.5 MG, TWICE DAILY
     Route: 048
     Dates: start: 20090513, end: 20130130
  14. PROGRAF [Suspect]
     Active Substance: TACROLIMUS\TACROLIMUS ANHYDROUS
     Dosage: 2-7 MG, TWICE DAILY
     Route: 048
     Dates: start: 20040119, end: 20121203
  15. PROGRAF [Suspect]
     Active Substance: TACROLIMUS\TACROLIMUS ANHYDROUS
     Indication: RENAL TRANSPLANT
     Route: 041
     Dates: start: 20040114, end: 20040119
  16. XELODA [Concomitant]
     Active Substance: CAPECITABINE
     Indication: BREAST CANCER
     Route: 048
     Dates: start: 20160315, end: 20160411
  17. SOLU-MEDROL [Suspect]
     Active Substance: METHYLPREDNISOLONE SODIUM SUCCINATE
     Route: 042
     Dates: start: 20040115, end: 20040119
  18. FERROUS SODIUM CITRATE [Concomitant]
     Active Substance: SODIUM FERROUS CITRATE
     Indication: RENAL TRANSPLANT
     Route: 048
     Dates: start: 20090513, end: 20161226
  19. TEPRENONE [Concomitant]
     Active Substance: TEPRENONE
     Indication: RENAL TRANSPLANT
     Route: 048
     Dates: start: 20090513, end: 20161226
  20. LOXOPROFEN SODIUM [Concomitant]
     Active Substance: LOXOPROFEN SODIUM
     Indication: RENAL TRANSPLANT
     Route: 048
     Dates: start: 20130306, end: 20140327
  21. GRACEPTOR [Suspect]
     Active Substance: TACROLIMUS
     Indication: RENAL TRANSPLANT
     Route: 048
     Dates: start: 20161221, end: 20161224
  22. SIMULECT [Suspect]
     Active Substance: BASILIXIMAB
     Route: 042
     Dates: start: 20040118, end: 20040118
  23. TS-1 [Concomitant]
     Active Substance: GIMERACIL\OTERACIL\TEGAFUR
     Route: 048
     Dates: start: 20141007, end: 20141021
  24. PROGRAF [Suspect]
     Active Substance: TACROLIMUS\TACROLIMUS ANHYDROUS
     Indication: RENAL TRANSPLANT
     Route: 048
     Dates: start: 20040111, end: 20040111
  25. ATORVASTATIN [Concomitant]
     Active Substance: ATORVASTATIN
     Indication: RENAL TRANSPLANT
     Route: 048
     Dates: start: 20130401, end: 20161226
  26. CELLCEPT [Suspect]
     Active Substance: MYCOPHENOLATE MOFETIL\MYCOPHENOLATE MOFETIL HYDROCHLORIDE
     Route: 048
     Dates: start: 20161221, end: 20161228
  27. MEDROL [Suspect]
     Active Substance: METHYLPREDNISOLONE
     Indication: RENAL TRANSPLANT
     Dosage: 4-32MG, ONCE DAILY
     Route: 048
     Dates: start: 20040120, end: 20170111
  28. XELODA [Concomitant]
     Active Substance: CAPECITABINE
     Route: 048
     Dates: start: 20160419, end: 20161214

REACTIONS (2)
  - Breast cancer recurrent [Not Recovered/Not Resolved]
  - Sarcoma uterus [Fatal]

NARRATIVE: CASE EVENT DATE: 20120925
